FAERS Safety Report 16474542 (Version 1)
Quarter: 2019Q3

REPORT INFORMATION
  Report Type: Spontaneous
  Country: US (occurrence: US)
  Receive Date: 20190624
  Receipt Date: 20190624
  Transmission Date: 20191004
  Serious: Yes (Life-Threatening, Hospitalization)
  Sender: FDA-Public Use
  Company Number: None

PATIENT
  Age: 79 Year
  Sex: Male
  Weight: 79.9 kg

DRUGS (10)
  1. VITAMIN E [Concomitant]
     Active Substance: .ALPHA.-TOCOPHEROL
     Dates: start: 19990101
  2. MULTIVITAMIN [Concomitant]
     Active Substance: VITAMINS
     Dates: start: 19990101
  3. PREDNISONE. [Concomitant]
     Active Substance: PREDNISONE
     Dates: start: 20190607
  4. PANTOPRAZOLE [Concomitant]
     Active Substance: PANTOPRAZOLE
     Dates: start: 20190607
  5. BACTRIM [Concomitant]
     Active Substance: SULFAMETHOXAZOLE\TRIMETHOPRIM
     Dates: start: 20190613
  6. TURMERIC [Concomitant]
     Active Substance: HERBALS\TURMERIC
     Dates: start: 20120101
  7. FENUGREEK [Concomitant]
     Active Substance: FENUGREEK SEED
     Dates: start: 19990101
  8. OPDIVO [Suspect]
     Active Substance: NIVOLUMAB
     Indication: MALIGNANT MELANOMA
     Dosage: ?          OTHER FREQUENCY:Q2W;?
     Route: 042
     Dates: start: 20190510, end: 20190607
  9. OMEGA 3 [Concomitant]
     Active Substance: OMEGA-3 FATTY ACIDS
     Dates: start: 20170101
  10. MOBIC [Concomitant]
     Active Substance: MELOXICAM
     Dates: start: 20190611

REACTIONS (2)
  - Autoimmune myositis [None]
  - Hepatitis [None]

NARRATIVE: CASE EVENT DATE: 20190612
